FAERS Safety Report 14631838 (Version 3)
Quarter: 2018Q2

REPORT INFORMATION
  Report Type: Spontaneous
  Country: US (occurrence: US)
  Receive Date: 20180313
  Receipt Date: 20180428
  Transmission Date: 20180711
  Serious: Yes (Death, Hospitalization)
  Sender: FDA-Public Use
  Company Number: US-VIFOR (INTERNATIONAL) INC.-VIT-2018-02364

PATIENT
  Age: 62 Year
  Sex: Male

DRUGS (18)
  1. OXYCODONE HYDROCHLORIDE. [Concomitant]
     Active Substance: OXYCODONE HYDROCHLORIDE
  2. ABILIFY [Concomitant]
     Active Substance: ARIPIPRAZOLE
  3. KAYEXALATE [Concomitant]
     Active Substance: SODIUM POLYSTYRENE SULFONATE
  4. MELATONIN [Concomitant]
     Active Substance: MELATONIN
  5. TRESIBA [Concomitant]
     Active Substance: INSULIN DEGLUDEC
  6. APAP [Concomitant]
     Active Substance: ACETAMINOPHEN
  7. MILK OF MAGNESIA [Concomitant]
     Active Substance: MAGNESIUM HYDROXIDE
  8. RENVELA [Concomitant]
     Active Substance: SEVELAMER CARBONATE
  9. DULOXETINE HYDROCHLORIDE. [Concomitant]
     Active Substance: DULOXETINE HYDROCHLORIDE
  10. COLECALCIFEROL [Concomitant]
     Active Substance: CHOLECALCIFEROL
     Dosage: HIGH POTENCY
  11. VELTASSA [Suspect]
     Active Substance: PATIROMER
     Indication: HYPERKALAEMIA
     Route: 048
     Dates: start: 20171027
  12. DOXAZOSIN MESILATE [Concomitant]
     Active Substance: DOXAZOSIN MESYLATE
  13. SERTRALINE HYDROCHLORIDE. [Concomitant]
     Active Substance: SERTRALINE HYDROCHLORIDE
  14. SODIUM BICARBONATE. [Concomitant]
     Active Substance: SODIUM BICARBONATE
  15. CAL-GEST ANTACID [Concomitant]
  16. VALPROATE SEMISODIUM [Concomitant]
     Active Substance: DIVALPROEX SODIUM
  17. HUMALOG [Concomitant]
     Active Substance: INSULIN LISPRO
  18. FENTANYL. [Concomitant]
     Active Substance: FENTANYL

REACTIONS (2)
  - Death [Fatal]
  - Unevaluable event [Unknown]

NARRATIVE: CASE EVENT DATE: 20180410
